FAERS Safety Report 9450570 (Version 2)
Quarter: 2013Q3

REPORT INFORMATION
  Report Type: Report from Study
  Country: JP (occurrence: JP)
  Receive Date: 20130809
  Receipt Date: 20130813
  Transmission Date: 20140515
  Serious: Yes (Hospitalization)
  Sender: FDA-Public Use
  Company Number: JP-GLAXOSMITHKLINE-B0856664A

PATIENT
  Age: 45 Year
  Sex: Female
  Weight: 157 kg

DRUGS (1)
  1. HYCAMTIN [Suspect]
     Indication: OVARIAN CANCER RECURRENT
     Dosage: 1.5MGM2 PER DAY
     Route: 042
     Dates: start: 20120123

REACTIONS (5)
  - Anaemia [Recovering/Resolving]
  - White blood cell count decreased [Recovered/Resolved]
  - Neutrophil count decreased [Recovered/Resolved]
  - Red blood cell count decreased [Recovering/Resolving]
  - Cancer pain [Recovering/Resolving]
